FAERS Safety Report 20706752 (Version 1)
Quarter: 2022Q2

REPORT INFORMATION
  Report Type: Spontaneous
  Country: MY (occurrence: MY)
  Receive Date: 20220413
  Receipt Date: 20220413
  Transmission Date: 20220720
  Serious: Yes (Hospitalization, Other)
  Sender: FDA-Public Use
  Company Number: MY-DSJP-DSJ-2022-112655

PATIENT
  Sex: Female

DRUGS (3)
  1. EDOXABAN [Suspect]
     Active Substance: EDOXABAN
     Indication: Cerebrovascular accident
     Dosage: 60 MG, QD
     Route: 048
  2. EDOXABAN [Suspect]
     Active Substance: EDOXABAN
     Indication: Embolism arterial
     Dosage: 30 MG, UNKNOWN
     Route: 048
  3. EDOXABAN [Suspect]
     Active Substance: EDOXABAN
     Indication: Prophylaxis

REACTIONS (1)
  - Cerebrovascular accident [Unknown]
